FAERS Safety Report 17619023 (Version 6)
Quarter: 2021Q2

REPORT INFORMATION
  Report Type: Report from Study
  Country: US (occurrence: US)
  Receive Date: 20200402
  Receipt Date: 20210506
  Transmission Date: 20210716
  Serious: Yes (Other)
  Sender: FDA-Public Use
  Company Number: US-BAUSCH-BL-2020-009207

PATIENT
  Age: 75 Year
  Sex: Female

DRUGS (11)
  1. SERTRALINE [Concomitant]
     Active Substance: SERTRALINE HYDROCHLORIDE
     Indication: PRODUCT USED FOR UNKNOWN INDICATION
  2. ASPRIN [Concomitant]
     Active Substance: ASPIRIN
     Indication: PRODUCT USED FOR UNKNOWN INDICATION
  3. ATENOLOL. [Concomitant]
     Active Substance: ATENOLOL
     Indication: PRODUCT USED FOR UNKNOWN INDICATION
  4. METFORMIN [Concomitant]
     Active Substance: METFORMIN HYDROCHLORIDE
     Indication: PRODUCT USED FOR UNKNOWN INDICATION
  5. ATORVASTATIN [Concomitant]
     Active Substance: ATORVASTATIN
     Indication: PRODUCT USED FOR UNKNOWN INDICATION
  6. AMLODIPINE [Concomitant]
     Active Substance: AMLODIPINE BESYLATE
     Indication: PRODUCT USED FOR UNKNOWN INDICATION
  7. LISINOPRIL/HCTZ [Concomitant]
     Active Substance: HYDROCHLOROTHIAZIDE\LISINOPRIL
     Indication: PRODUCT USED FOR UNKNOWN INDICATION
  8. UCERIS [Suspect]
     Active Substance: BUDESONIDE
     Indication: COLECTOMY
     Dosage: STRETCHING BY TAKING EVERY OTHER DAY
     Route: 048
     Dates: end: 20200322
  9. UCERIS [Suspect]
     Active Substance: BUDESONIDE
     Indication: COLITIS ULCERATIVE
     Dosage: STARTED IN 2008 OR 2009 (APPROXIMATELY 6 YEARS AGO FROM DATE OF THIS REPORT)
     Route: 048
  10. UCERIS [Suspect]
     Active Substance: BUDESONIDE
     Route: 048
     Dates: start: 2020, end: 20210323
  11. KLOR?CON [Concomitant]
     Active Substance: POTASSIUM CHLORIDE
     Indication: PRODUCT USED FOR UNKNOWN INDICATION
     Dosage: 20 UNKNOWN UNIT

REACTIONS (10)
  - Asthenia [Not Recovered/Not Resolved]
  - Insurance issue [Unknown]
  - Therapy interrupted [Unknown]
  - Weight decreased [Not Recovered/Not Resolved]
  - Intentional product use issue [Unknown]
  - Abdominal pain upper [Not Recovered/Not Resolved]
  - Eating disorder [Not Recovered/Not Resolved]
  - Abdominal pain [Not Recovered/Not Resolved]
  - Diarrhoea [Not Recovered/Not Resolved]
  - Colon cancer [Recovered/Resolved]

NARRATIVE: CASE EVENT DATE: 2020
